FAERS Safety Report 17767325 (Version 2)
Quarter: 2020Q2

REPORT INFORMATION
  Report Type: Report from Study
  Country: IN (occurrence: IN)
  Receive Date: 20200511
  Receipt Date: 20200521
  Transmission Date: 20200714
  Serious: Yes (Other)
  Sender: FDA-Public Use
  Company Number: NVSC2020IN087002

PATIENT
  Age: 68 Year
  Sex: Female
  Weight: 75 kg

DRUGS (6)
  1. TELSAR-H [Concomitant]
     Indication: PRODUCT USED FOR UNKNOWN INDICATION
     Dosage: UNK, QD, 1-0-0,POST MEAL
     Route: 065
  2. NO DAN [Concomitant]
     Indication: PRODUCT USED FOR UNKNOWN INDICATION
     Dosage: UNK, QD, 1-0-0,POST MEAL
     Route: 065
  3. GALVUS MET [Suspect]
     Active Substance: METFORMIN HYDROCHLORIDE\VILDAGLIPTIN
     Indication: DIABETES MELLITUS
     Dosage: 1 DF, BID (METFORMIN 1000MG, VILDAGLIPTIN 50MG), 1-0-1, POST MEAL
     Route: 048
     Dates: start: 2014
  4. ECOSPRIN GOLD [Concomitant]
     Indication: PRODUCT USED FOR UNKNOWN INDICATION
     Dosage: UNK, QD (0-0-1,POST MEAL)
     Route: 065
  5. THYROFIT [Concomitant]
     Indication: PRODUCT USED FOR UNKNOWN INDICATION
     Dosage: UNK, QD, (1-0-0, PRE MEAL)
     Route: 065
  6. GLADOR [Concomitant]
     Indication: PRODUCT USED FOR UNKNOWN INDICATION
     Dosage: UNK, BID (1-0-1,PRE MEAL)
     Route: 065

REACTIONS (9)
  - Arthralgia [Unknown]
  - Glycosylated haemoglobin increased [Unknown]
  - Hyperglycaemia [Unknown]
  - Insomnia [Unknown]
  - Blood pressure abnormal [Unknown]
  - Obesity [Unknown]
  - Dyspnoea [Unknown]
  - Malaise [Unknown]
  - Hunger [Unknown]

NARRATIVE: CASE EVENT DATE: 2017
